FAERS Safety Report 10433891 (Version 2)
Quarter: 2015Q1

REPORT INFORMATION
  Report Type: Spontaneous
  Country: JP (occurrence: JP)
  Receive Date: 20140905
  Receipt Date: 20150129
  Transmission Date: 20150720
  Serious: Yes (Hospitalization)
  Sender: FDA-Public Use
  Company Number: JP-PFIZER INC-2014244986

PATIENT
  Age: 34 Year
  Sex: Male

DRUGS (1)
  1. AMLODIPINE BESILATE [Suspect]
     Active Substance: AMLODIPINE BESYLATE
     Indication: HYPERTENSION
     Dosage: 84 DF, SINGLE
     Route: 048

REACTIONS (3)
  - Intentional overdose [Unknown]
  - Intestinal stenosis [Unknown]
  - Colitis ischaemic [Recovered/Resolved with Sequelae]
